FAERS Safety Report 7152989-8 (Version None)
Quarter: 2010Q4

REPORT INFORMATION
  Report Type: 
  Country: None (occurrence: None)
  Receive Date: 20101209
  Receipt Date: 20101209
  Transmission Date: 20110411
  Serious: Yes (Death)
  Sender: FDA-Public Use
  Company Number: None

PATIENT
  Age: 79 Year
  Sex: Female

DRUGS (8)
  1. REVLIMID [Suspect]
     Indication: MULTIPLE MYELOMA
     Dosage: 10MG DAILY ORALLY
     Route: 048
     Dates: start: 20090901, end: 20100601
  2. ROXANOL [Concomitant]
  3. ATARAX [Concomitant]
  4. DIGOXIN [Concomitant]
  5. ATENOLOL [Concomitant]
  6. COLACE [Concomitant]
  7. OMEPRAZOLE [Concomitant]
  8. POTASSIUM [Concomitant]

REACTIONS (1)
  - NO ADVERSE EVENT [None]
